FAERS Safety Report 5151965-4 (Version None)
Quarter: 2006Q4

REPORT INFORMATION
  Report Type: 
  Country: None (occurrence: None)
  Receive Date: 20061109
  Receipt Date: 20061027
  Transmission Date: 20070319
  Serious: Yes (Hospitalization)
  Sender: FDA-Public Use
  Company Number: 2006134134

PATIENT
  Age: 80 Year
  Sex: Male

DRUGS (17)
  1. PREDNISOLONE [Suspect]
     Dosage: 15 MG (15 MG, 1 IN 1 D)
     Dates: end: 20060722
  2. RISEDRONATE                    (RISEDRONIC ACID) [Suspect]
     Dosage: 35 MG, 1 IN 1 WK, ORAL
     Route: 048
     Dates: end: 20060722
  3. WARFARIN SODIUM [Suspect]
     Indication: ATRIAL FIBRILLATION
     Dates: end: 20060722
  4. XALATAN [Concomitant]
  5. ATORVASTATIN CALCIUM [Concomitant]
  6. BENDROFLUAZIDE                 (BENDROFLUAZIDE) [Concomitant]
  7. BUDESONIDE [Concomitant]
  8. CACIT                       (CALCIUM CARBONATE, CITRIC ACID) [Concomitant]
  9. CLARITHROMYCIN [Concomitant]
  10. CO-DYDRAMOL                 (DIHYDROCODEINE BITARTRATE, PARACETAMOL) [Concomitant]
  11. DIGOXIN [Concomitant]
  12. FERROUS SULFATE TAB [Concomitant]
  13. IPRATROPIUM BROMIDE [Concomitant]
  14. MOVICOL                          (MACROGOL, POTASSIUM CHLORIDE, SODIUM [Concomitant]
  15. OMEPRAZOLE [Concomitant]
  16. SALBUTAMOL                   (SALBUTAMOL) [Concomitant]
  17. THEOPHYLLINE [Concomitant]

REACTIONS (3)
  - DRUG INTERACTION [None]
  - HAEMATEMESIS [None]
  - OESOPHAGEAL ULCER [None]
